FAERS Safety Report 4986493-X (Version None)
Quarter: 2006Q2

REPORT INFORMATION
  Report Type: 
  Country: None (occurrence: None)
  Receive Date: 20060424
  Receipt Date: 20060415
  Transmission Date: 20061013
  Serious: Yes (Hospitalization)
  Sender: FDA-Public Use
  Company Number: 216141

PATIENT
  Age: 79 Year
  Sex: Female
  Weight: 63.5 kg

DRUGS (8)
  1. BEVACIZUMAB (BEVACIZUMAB) PWDR + SOLVENT, INFUSION SOLN, 100MG [Suspect]
     Indication: PERITONEAL CARCINOMA
     Dosage: 925 MG, Q3W, INTRAVENOUS
     Route: 042
     Dates: start: 20050511, end: 20050713
  2. LORTAB [Concomitant]
  3. ATIVAN [Concomitant]
  4. AMITRIPTYLINE HCL [Concomitant]
  5. SUDAFED 12 HOUR [Concomitant]
  6. FIORICET (CAFFEINE, BUTALBITAL, ACETAMINOPHEN) [Concomitant]
  7. PREVACID [Concomitant]
  8. ASPIRIN [Concomitant]

REACTIONS (25)
  - ALANINE AMINOTRANSFERASE INCREASED [None]
  - ASPARTATE AMINOTRANSFERASE INCREASED [None]
  - ATELECTASIS [None]
  - BLOOD PRESSURE SYSTOLIC INCREASED [None]
  - CEREBRAL INFARCTION [None]
  - CEREBRAL ISCHAEMIA [None]
  - CHOLELITHIASIS [None]
  - DEHYDRATION [None]
  - DISORIENTATION [None]
  - DRUG TOXICITY [None]
  - ELECTROCARDIOGRAM ST SEGMENT DEPRESSION [None]
  - FALL [None]
  - FATIGUE [None]
  - HEAD INJURY [None]
  - HYPOXIA [None]
  - ORAL INTAKE REDUCED [None]
  - OVERDOSE [None]
  - PERFORMANCE STATUS DECREASED [None]
  - PLATELET COUNT DECREASED [None]
  - PULMONARY EMBOLISM [None]
  - PULMONARY HYPERTENSION [None]
  - SINUS TACHYCARDIA [None]
  - SINUSITIS [None]
  - SOMNOLENCE [None]
  - VOMITING [None]
